FAERS Safety Report 9831771 (Version 1)
Quarter: 2014Q1

REPORT INFORMATION
  Report Type: Spontaneous
  Country: US (occurrence: US)
  Receive Date: 20140121
  Receipt Date: 20140121
  Transmission Date: 20141002
  Serious: No
  Sender: FDA-Public Use
  Company Number: US-PFIZER INC-2014013974

PATIENT
  Age: 72 Year
  Sex: Male
  Weight: 113 kg

DRUGS (5)
  1. SOMAVERT [Suspect]
     Indication: ACROMEGALY
     Dosage: 30 MG, 1X/DAY
  2. SOMATULINE [Interacting]
     Indication: ACROMEGALY
     Dosage: 90 MG, EVERY 28 DAYS
     Dates: start: 201301
  3. SYNTHROID [Concomitant]
     Indication: HORMONE REPLACEMENT THERAPY
     Dosage: 150 UG, 1X/DAY
  4. HYDROCORTISONE [Concomitant]
     Indication: HORMONE REPLACEMENT THERAPY
     Dosage: 10MG DAILY IN MORNING, AND 5MG IN AFTERNOON
  5. ANDROGEL [Concomitant]
     Indication: HORMONE REPLACEMENT THERAPY
     Dosage: 3 G, 1X/DAY
     Route: 061

REACTIONS (5)
  - Drug interaction [Unknown]
  - Abdominal pain [Recovered/Resolved]
  - Abdominal tenderness [Recovered/Resolved]
  - Pain [Recovered/Resolved]
  - Drug ineffective [Unknown]
